FAERS Safety Report 9886554 (Version 1)
Quarter: 2014Q1

REPORT INFORMATION
  Report Type: Spontaneous
  Country: SE (occurrence: SE)
  Receive Date: 20140210
  Receipt Date: 20140210
  Transmission Date: 20141002
  Serious: Yes (Other)
  Sender: FDA-Public Use
  Company Number: SE-ACTAVIS-2014-02174

PATIENT
  Sex: Female

DRUGS (3)
  1. SERTRALIN ACTAVIS [Suspect]
     Indication: BIPOLAR I DISORDER
     Dosage: 50 MG, DAILY
     Route: 065
     Dates: start: 201312, end: 201312
  2. SERTRALIN ACTAVIS [Suspect]
     Dosage: 100 MG, DAILY
     Route: 065
     Dates: start: 201312, end: 201401
  3. LITHIONIT [Concomitant]
     Indication: BIPOLAR I DISORDER
     Dosage: 84 MG, BID
     Dates: start: 201308

REACTIONS (8)
  - Personality change [Recovered/Resolved]
  - Tremor [Not Recovered/Not Resolved]
  - Balance disorder [Recovered/Resolved]
  - Hypoaesthesia [Not Recovered/Not Resolved]
  - Formication [Not Recovered/Not Resolved]
  - Dizziness [Not Recovered/Not Resolved]
  - Tinnitus [Not Recovered/Not Resolved]
  - Drug withdrawal syndrome [Unknown]
